FAERS Safety Report 17664621 (Version 3)
Quarter: 2021Q2

REPORT INFORMATION
  Report Type: Spontaneous
  Country: US (occurrence: US)
  Receive Date: 20200414
  Receipt Date: 20210408
  Transmission Date: 20210716
  Serious: Yes (Death, Other)
  Sender: FDA-Public Use
  Company Number: US-PFIZER INC-2020149443

PATIENT
  Sex: Female

DRUGS (7)
  1. LIDOCAINE HCL [Suspect]
     Active Substance: LIDOCAINE HYDROCHLORIDE
     Dosage: UNK (INFILTRATE THE LEFT BREAST)
  2. DORIDEN [Concomitant]
     Active Substance: GLUTETHIMIDE
     Dosage: UNK (TABLET)
  3. MEPIVACAINE HCL [Suspect]
     Active Substance: MEPIVACAINE HYDROCHLORIDE
     Indication: LOCAL ANAESTHESIA
     Dosage: 150 MG, UNK
  4. TETRACAINE. [Suspect]
     Active Substance: TETRACAINE
     Indication: LOCAL ANAESTHESIA
     Dosage: 1 ML, UNK
  5. EPINEPHRINE. [Concomitant]
     Active Substance: EPINEPHRINE
     Dosage: UNK (INJECTED)
  6. LIDOCAINE HCL [Suspect]
     Active Substance: LIDOCAINE HYDROCHLORIDE
     Indication: LOCAL ANAESTHESIA
     Dosage: 25 ML, UNK
  7. DARVON [Concomitant]
     Active Substance: PROPOXYPHENE HYDROCHLORIDE
     Dosage: UNK (CAPSULE)

REACTIONS (2)
  - Seizure [Fatal]
  - Overdose [Fatal]
